FAERS Safety Report 14837240 (Version 3)
Quarter: 2018Q3

REPORT INFORMATION
  Report Type: Spontaneous
  Country: US (occurrence: US)
  Receive Date: 20180502
  Receipt Date: 20180726
  Transmission Date: 20181010
  Serious: No
  Sender: FDA-Public Use
  Company Number: US-ASTRAZENECA-2018SE42715

PATIENT
  Age: 26071 Day
  Sex: Female
  Weight: 77.1 kg

DRUGS (2)
  1. BYDUREON [Concomitant]
     Active Substance: EXENATIDE
     Indication: TYPE 2 DIABETES MELLITUS
     Route: 058
  2. BYDUREON BCISE [Suspect]
     Active Substance: EXENATIDE
     Indication: TYPE 2 DIABETES MELLITUS
     Route: 058
     Dates: start: 20180402

REACTIONS (6)
  - Drug dose omission [Unknown]
  - Device issue [Unknown]
  - Circumstance or information capable of leading to device use error [Unknown]
  - Injection site haemorrhage [Recovered/Resolved]
  - Injury associated with device [Recovered/Resolved]
  - Needle issue [Unknown]

NARRATIVE: CASE EVENT DATE: 20180402
